FAERS Safety Report 11677515 (Version 2)
Quarter: 2015Q4

REPORT INFORMATION
  Report Type: Spontaneous
  Country: BR (occurrence: BR)
  Receive Date: 20151028
  Receipt Date: 20151106
  Transmission Date: 20160304
  Serious: Yes (Hospitalization)
  Sender: FDA-Public Use
  Company Number: BR-PFIZER INC-2015363495

PATIENT
  Age: 67 Year
  Sex: Female

DRUGS (3)
  1. NAPRIX [Concomitant]
     Active Substance: RAMIPRIL
     Dosage: 10 MG, DAILY
  2. FRONTAL [Suspect]
     Active Substance: ALPRAZOLAM
     Indication: HYPERTENSION
     Dosage: 1 TABLET OF STRENGHT 2 MG, AT NIGHT
     Route: 048
     Dates: start: 2012
  3. NEMODINE [Concomitant]
     Indication: HYPERTENSION
     Dosage: 1 DF, DAILY

REACTIONS (6)
  - Agitation [Unknown]
  - Headache [Unknown]
  - Tension [Unknown]
  - Product use issue [Unknown]
  - Anxiety [Unknown]
  - Hypertension [Unknown]
